FAERS Safety Report 23358420 (Version 2)
Quarter: 2025Q3

REPORT INFORMATION
  Report Type: Report from Study
  Country: EU (occurrence: EU)
  Receive Date: 20240102
  Receipt Date: 20250825
  Transmission Date: 20251021
  Serious: Yes (Other)
  Sender: GUERBET
  Company Number: EU-GUERBETG-FR-20220064

PATIENT
  Age: 79 Year
  Sex: Female

DRUGS (2)
  1. LIPIODOL [Suspect]
     Active Substance: ETHIODIZED OIL
     Indication: Therapeutic embolisation
     Dosage: AN EMULSION OF 6 ML OF LIPIODOL IN MIXTURE WITH 2 ML OF OPTIRAY 300 AT A RATIO OF 1:3 (V:V)
     Route: 013
     Dates: start: 20210922, end: 20210922
  2. OPTIRAY 300 [Suspect]
     Active Substance: IOVERSOL
     Indication: Therapeutic embolisation
     Dosage: AN EMULSION OF 6 ML OF LIPIODOL IN MIXTURE WITH 2 ML OF OPTIRAY 300 AT A RATIO OF 1:3 (V:V)
     Route: 013
     Dates: start: 20210922, end: 20210922

REACTIONS (2)
  - Off label use [Recovered/Resolved]
  - Renal impairment [Recovered/Resolved]

NARRATIVE: CASE EVENT DATE: 20210922
